FAERS Safety Report 9521249 (Version 3)
Quarter: 2013Q4

REPORT INFORMATION
  Report Type: Spontaneous
  Country: ES (occurrence: ES)
  Receive Date: 20130913
  Receipt Date: 20131105
  Transmission Date: 20140711
  Serious: Yes (Life-Threatening, Hospitalization)
  Sender: FDA-Public Use
  Company Number: ES-JNJFOC-20130905290

PATIENT
  Age: 53 Year
  Sex: Female
  Weight: 57.8 kg

DRUGS (9)
  1. DOXORUBICIN [Suspect]
     Indication: OVARIAN CANCER
     Dosage: DAY 1
     Route: 042
     Dates: start: 20130204, end: 20130729
  2. EC145 [Suspect]
     Indication: OVARIAN CANCER
     Dosage: ON DAYS 1, 3, 5, 15, 17, 19
     Route: 042
     Dates: start: 20130204, end: 20130802
  3. EC20 [Suspect]
     Indication: SINGLE PHOTON EMISSION COMPUTERISED TOMOGRAM
     Route: 042
     Dates: start: 20130128, end: 20130128
  4. FOLIC ACID [Suspect]
     Indication: SINGLE PHOTON EMISSION COMPUTERISED TOMOGRAM
     Route: 042
     Dates: start: 20130128, end: 20130128
  5. METAMIZOLE [Concomitant]
     Indication: PAIN
     Route: 065
  6. TRAMADOL [Concomitant]
     Indication: PAIN
     Route: 065
  7. PARACETAMOL [Concomitant]
     Indication: PAIN
     Route: 065
  8. DEXAMETHASONE [Concomitant]
     Indication: BLOOD CORTICOSTERONE
     Route: 065
  9. LORAZEPAM [Concomitant]
     Indication: INSOMNIA
     Route: 065

REACTIONS (6)
  - Intestinal perforation [Recovered/Resolved]
  - Diarrhoea [Recovering/Resolving]
  - Peritonitis [Recovering/Resolving]
  - Enteritis [Recovering/Resolving]
  - Intestinal obstruction [Not Recovered/Not Resolved]
  - Escherichia infection [Recovering/Resolving]
